FAERS Safety Report 13030444 (Version 1)
Quarter: 2016Q4

REPORT INFORMATION
  Report Type: Spontaneous
  Country: US (occurrence: US)
  Receive Date: 20161215
  Receipt Date: 20161215
  Transmission Date: 20170207
  Serious: No
  Sender: FDA-Public Use
  Company Number: None

PATIENT
  Age: 42 Year
  Sex: Male
  Weight: 105.75 kg

DRUGS (1)
  1. ARMODAFINIL. [Suspect]
     Active Substance: ARMODAFINIL
     Indication: SHIFT WORK DISORDER
     Dosage: ?          QUANTITY:1 TABLET(S); ?
     Route: 048

REACTIONS (4)
  - Drug ineffective [None]
  - Accident at work [None]
  - Dizziness [None]
  - Gastric disorder [None]

NARRATIVE: CASE EVENT DATE: 20161215
